FAERS Safety Report 23053015 (Version 1)
Quarter: 2023Q4

REPORT INFORMATION
  Report Type: Spontaneous
  Country: ES (occurrence: ES)
  Receive Date: 20231011
  Receipt Date: 20231011
  Transmission Date: 20240110
  Serious: Yes (Hospitalization)
  Sender: FDA-Public Use
  Company Number: ES-JNJFOC-20230510914

PATIENT
  Age: 17 Year
  Sex: Male

DRUGS (5)
  1. YONDELIS [Suspect]
     Active Substance: TRABECTEDIN
     Indication: Embryonal rhabdomyosarcoma
     Route: 065
     Dates: start: 20230213, end: 20230213
  2. YONDELIS [Suspect]
     Active Substance: TRABECTEDIN
     Route: 065
     Dates: start: 20230306, end: 20230327
  3. YONDELIS [Suspect]
     Active Substance: TRABECTEDIN
     Route: 065
     Dates: start: 20230417, end: 20230417
  4. YONDELIS [Suspect]
     Active Substance: TRABECTEDIN
     Route: 065
     Dates: start: 20230508, end: 20230508
  5. DEXAMETHASONE [Concomitant]
     Active Substance: DEXAMETHASONE

REACTIONS (5)
  - Abdominal discomfort [Recovered/Resolved]
  - Malaise [Unknown]
  - Decreased appetite [Unknown]
  - Off label use [Unknown]
  - Product use issue [Unknown]

NARRATIVE: CASE EVENT DATE: 20230101
